FAERS Safety Report 4788165-3 (Version None)
Quarter: 2005Q4

REPORT INFORMATION
  Report Type: 
  Country: None (occurrence: None)
  Receive Date: 20051005
  Receipt Date: 20050925
  Transmission Date: 20060501
  Serious: Yes (Other)
  Sender: FDA-Public Use
  Company Number: US-JNJFOC-20050906892

PATIENT
  Age: 86 Year
  Sex: Female
  Weight: 44.45 kg

DRUGS (2)
  1. TYLENOL (CAPLET) [Suspect]
     Route: 048
  2. TYLENOL (CAPLET) [Suspect]
     Route: 048

REACTIONS (3)
  - CHOKING [None]
  - DYSPNOEA [None]
  - FOREIGN BODY TRAUMA [None]
